FAERS Safety Report 6568853-9 (Version None)
Quarter: 2010Q1

REPORT INFORMATION
  Report Type: 
  Country: None (occurrence: None)
  Receive Date: 20100201
  Receipt Date: 20100201
  Transmission Date: 20100710
  Serious: Yes (Other)
  Sender: FDA-Public Use
  Company Number: None

PATIENT
  Age: 77 Year
  Sex: Male
  Weight: 90.7194 kg

DRUGS (1)
  1. REBIF [Suspect]
     Indication: MULTIPLE SCLEROSIS
     Dosage: 44MG 3X PER WEEK
     Dates: start: 20070101, end: 20090601

REACTIONS (2)
  - INJECTION SITE INFECTION [None]
  - NO THERAPEUTIC RESPONSE [None]
